FAERS Safety Report 8003200-7 (Version None)
Quarter: 2011Q4

REPORT INFORMATION
  Report Type: 
  Country: None (occurrence: None)
  Receive Date: 20111222
  Receipt Date: 20111209
  Transmission Date: 20120403
  Serious: Yes (Hospitalization, Other)
  Sender: FDA-Public Use
  Company Number: PHEH2011US008909

PATIENT
  Sex: Female

DRUGS (17)
  1. OMEPRAZOLE [Concomitant]
     Indication: GASTROOESOPHAGEAL REFLUX DISEASE
     Dosage: 20 MG, QD
     Route: 048
     Dates: start: 20030101
  2. ATENOLOL [Concomitant]
     Indication: HYPERTENSION
     Dosage: 50 MG, QD
     Route: 048
     Dates: start: 20020101
  3. CALCIUM WITH VITAMIN D [Concomitant]
     Dosage: 100 MG, BID
     Dates: start: 20020101
  4. MORPHINE [Concomitant]
     Indication: FIBROMYALGIA
     Dosage: 30 MG, TID
     Dates: start: 20100601
  5. VICODIN [Concomitant]
     Indication: HEADACHE
     Dosage: UNK
     Route: 048
     Dates: start: 20110907
  6. BENADRYL [Concomitant]
     Indication: HYPERSENSITIVITY
     Dosage: 25 MG, BID
     Route: 048
     Dates: start: 20010101
  7. BACLOFEN [Concomitant]
     Dosage: 40 MG, TID
     Route: 048
     Dates: start: 20101201
  8. GILENYA [Suspect]
     Indication: MULTIPLE SCLEROSIS
     Dosage: 0.5 MG, QD
     Dates: start: 20100901
  9. DULCOLAX [Concomitant]
     Dosage: 1 DF, PRN
     Dates: start: 20100601
  10. CETIRIZINE [Concomitant]
     Indication: HYPERSENSITIVITY
     Dosage: 10 MG, QD
     Route: 048
     Dates: start: 20010101
  11. ESTRADIOL [Concomitant]
     Indication: HORMONE REPLACEMENT THERAPY
     Dosage: 1 MG, QD
     Route: 048
     Dates: start: 20040101
  12. TRAZODONE HCL [Concomitant]
     Indication: INSOMNIA
     Dosage: 300 MG, UNK
     Route: 048
     Dates: start: 19930101
  13. DULOXETINE HYDROCHLORIDE [Concomitant]
     Indication: DEPRESSION
     Dosage: 120 MG, UNK
     Route: 048
     Dates: start: 20100401
  14. LEVOTHYROXINE SODIUM [Concomitant]
     Indication: HYPOTHYROIDISM
     Dosage: 0.1 MG, QD
     Dates: start: 19930101
  15. METFORMIN HCL [Concomitant]
     Indication: TYPE 2 DIABETES MELLITUS
     Dosage: 500 MG, BID
     Dates: start: 20101201
  16. COPAXONE [Concomitant]
     Indication: MULTIPLE SCLEROSIS
     Dosage: 20 MG, QD
     Route: 058
     Dates: start: 20030101
  17. BUTORPHANOL TARATRATE [Concomitant]
     Indication: HEADACHE
     Dosage: 10 MG/ML, PRN
     Dates: start: 20100401

REACTIONS (5)
  - COUGH [None]
  - INSOMNIA [None]
  - LOWER RESPIRATORY TRACT INFECTION [None]
  - RESPIRATORY TRACT CONGESTION [None]
  - BRONCHITIS CHRONIC [None]
